FAERS Safety Report 14664521 (Version 1)
Quarter: 2018Q1

REPORT INFORMATION
  Report Type: Spontaneous
  Country: AR (occurrence: AR)
  Receive Date: 20180321
  Receipt Date: 20180321
  Transmission Date: 20180509
  Serious: Yes (Other)
  Sender: FDA-Public Use
  Company Number: AR-PFIZER INC-2018113700

PATIENT
  Age: 15 Year
  Sex: Female

DRUGS (1)
  1. ZELDOX [Suspect]
     Active Substance: ZIPRASIDONE
     Dosage: 20 MG, UNK

REACTIONS (4)
  - Loss of consciousness [Unknown]
  - Fall [Unknown]
  - Product use issue [Unknown]
  - Seizure [Unknown]
